FAERS Safety Report 9602416 (Version 1)
Quarter: 2013Q4

REPORT INFORMATION
  Report Type: Spontaneous
  Country: US (occurrence: US)
  Receive Date: 20131007
  Receipt Date: 20131007
  Transmission Date: 20140711
  Serious: Yes (Hospitalization)
  Sender: FDA-Public Use
  Company Number: US-PFIZER INC-2013285300

PATIENT
  Age: 64 Year
  Sex: Female

DRUGS (1)
  1. XALKORI [Suspect]
     Indication: BRONCHIAL CARCINOMA
     Dosage: 250 MG, UNK
     Dates: start: 20130426

REACTIONS (1)
  - Ankle fracture [Unknown]
